FAERS Safety Report 13972381 (Version 4)
Quarter: 2022Q2

REPORT INFORMATION
  Report Type: Report from Study
  Country: US (occurrence: US)
  Receive Date: 20170914
  Receipt Date: 20220629
  Transmission Date: 20220721
  Serious: Yes (Hospitalization, Disabling)
  Sender: FDA-Public Use
  Company Number: US-ASTELLAS-2016US048743

PATIENT
  Age: 74 Year
  Sex: Male

DRUGS (2)
  1. ENZALUTAMIDE [Suspect]
     Active Substance: ENZALUTAMIDE
     Indication: Prostate cancer
     Route: 048
     Dates: start: 20161118
  2. ENZALUTAMIDE [Suspect]
     Active Substance: ENZALUTAMIDE
     Indication: Metastasis
     Route: 048
     Dates: start: 202012, end: 20220525

REACTIONS (27)
  - Balance disorder [Unknown]
  - Fall [Unknown]
  - Upper limb fracture [Unknown]
  - Lower limb fracture [Unknown]
  - Lung disorder [Unknown]
  - Eye discharge [Unknown]
  - Dyspnoea exertional [Unknown]
  - Urinary sediment present [Recovered/Resolved]
  - Faeces hard [Unknown]
  - Upper-airway cough syndrome [Unknown]
  - Hyperhidrosis [Not Recovered/Not Resolved]
  - Infection [Unknown]
  - Pain in extremity [Unknown]
  - Hypoaesthesia [Unknown]
  - Constipation [Not Recovered/Not Resolved]
  - Diarrhoea [Unknown]
  - Headache [Unknown]
  - Fatigue [Unknown]
  - Sinus disorder [Unknown]
  - Ear haemorrhage [Unknown]
  - Otorrhoea [Unknown]
  - Purulent discharge [Unknown]
  - Product physical issue [Unknown]
  - Product storage error [Unknown]
  - Expired product administered [Unknown]
  - Product availability issue [Unknown]
  - Product prescribing issue [Unknown]

NARRATIVE: CASE EVENT DATE: 20210201
